FAERS Safety Report 9256766 (Version 4)
Quarter: 2014Q1

REPORT INFORMATION
  Report Type: Spontaneous
  Country: US (occurrence: US)
  Receive Date: 20130426
  Receipt Date: 20140103
  Transmission Date: 20141002
  Serious: Yes (Death, Hospitalization, Disabling, Other)
  Sender: FDA-Public Use
  Company Number: US-ASTRAZENECA-2013SE27719

PATIENT
  Age: 62 Year
  Sex: Female
  Weight: 135.6 kg

DRUGS (24)
  1. NEXIUM [Suspect]
     Indication: GASTROOESOPHAGEAL REFLUX DISEASE
     Route: 048
  2. NEXIUM [Suspect]
     Indication: ULCER
     Route: 048
  3. NEXIUM [Suspect]
     Indication: GASTROOESOPHAGEAL REFLUX DISEASE
     Route: 048
     Dates: start: 20070102
  4. NEXIUM [Suspect]
     Indication: ULCER
     Route: 048
     Dates: start: 20070102
  5. NEXIUM [Suspect]
     Indication: GASTROOESOPHAGEAL REFLUX DISEASE
     Route: 048
     Dates: start: 20101201
  6. NEXIUM [Suspect]
     Indication: ULCER
     Route: 048
     Dates: start: 20101201
  7. PRILOSEC [Suspect]
     Route: 048
  8. PREVACID [Concomitant]
     Indication: GASTROOESOPHAGEAL REFLUX DISEASE
     Dates: start: 1999
  9. PREVACID [Concomitant]
     Indication: ULCER
     Dates: start: 1999
  10. PEPTO BISMOL [Concomitant]
  11. ROLAIDS [Concomitant]
  12. MYLANTA [Concomitant]
  13. ESTRADOL [Concomitant]
     Dates: start: 2001
  14. PREMARIN [Concomitant]
     Dates: start: 1997, end: 2004
  15. PROZAC [Concomitant]
     Dates: start: 1997, end: 2004
  16. AMITRIPTYLINE [Concomitant]
     Dates: start: 20100602
  17. LEVOTHYROXINE [Concomitant]
  18. GABAPENTIN [Concomitant]
     Route: 048
  19. HYDROXYZINE HCL [Concomitant]
     Indication: PRURITUS
     Route: 048
  20. LIPITOR [Concomitant]
     Dates: start: 200610
  21. FLUCONAZOLE [Concomitant]
     Dates: start: 200612
  22. SKELAXIN [Concomitant]
     Dates: start: 200701
  23. DIOVAN [Concomitant]
     Dates: start: 200703
  24. VERAPAMIL ER [Concomitant]
     Dates: start: 200612

REACTIONS (18)
  - Death [Fatal]
  - Myocardial infarction [Unknown]
  - Chronic obstructive pulmonary disease [Unknown]
  - Ankle fracture [Unknown]
  - Pneumonia [Unknown]
  - Cellulitis [Unknown]
  - Osteomyelitis [Unknown]
  - Multiple fractures [Unknown]
  - Intervertebral disc degeneration [Unknown]
  - Fall [Unknown]
  - Cataract [Unknown]
  - Diabetes mellitus [Unknown]
  - Glaucoma [Unknown]
  - Bone disorder [Unknown]
  - Osteoporosis [Unknown]
  - Foot fracture [Unknown]
  - Fibula fracture [Unknown]
  - Depression [Unknown]
